FAERS Safety Report 6461021-0 (Version None)
Quarter: 2009Q4

REPORT INFORMATION
  Report Type: 
  Country: None (occurrence: None)
  Receive Date: 20091130
  Receipt Date: 20091124
  Transmission Date: 20100525
  Serious: Yes (Hospitalization)
  Sender: FDA-Public Use
  Company Number: A0827300A

PATIENT
  Age: 55 Year
  Sex: Male

DRUGS (1)
  1. AVANDIA [Suspect]
     Indication: DIABETES MELLITUS
     Route: 048
     Dates: end: 20081120

REACTIONS (4)
  - CARDIAC FAILURE [None]
  - DIABETES MELLITUS [None]
  - MULTIPLE FRACTURES [None]
  - MYOCARDIAL INFARCTION [None]
